FAERS Safety Report 8777337 (Version 2)
Quarter: 2012Q4

REPORT INFORMATION
  Report Type: 
  Country: JP (occurrence: JP)
  Receive Date: 20120911
  Receipt Date: 20121001
  Transmission Date: 20130627
  Serious: Yes (Other)
  Sender: FDA-Public Use
  Company Number: JP-PFIZER INC-2012223096

PATIENT
  Age: 60 Year
  Sex: Male

DRUGS (3)
  1. CHAMPIX [Suspect]
     Indication: SMOKING CESSATION THERAPY
     Dosage: 0.5 mg, 1x/day
     Route: 048
     Dates: start: 20120702, end: 20120704
  2. CHAMPIX [Suspect]
     Dosage: 0.5 mg, 2x/day
     Route: 048
     Dates: start: 20120705, end: 20120708
  3. CHAMPIX [Suspect]
     Dosage: 1 mg, 2x/day
     Route: 048
     Dates: start: 20120709, end: 20120727

REACTIONS (5)
  - Hepatic function abnormal [Recovered/Resolved]
  - Jaundice [Recovered/Resolved]
  - Malaise [Recovered/Resolved]
  - Somnolence [Recovered/Resolved]
  - Decreased appetite [Recovered/Resolved]
